FAERS Safety Report 9344176 (Version 1)
Quarter: 2013Q2

REPORT INFORMATION
  Report Type: Spontaneous
  Country: US (occurrence: None)
  Receive Date: 20130610
  Receipt Date: 20130610
  Transmission Date: 20140414
  Serious: Yes (Death)
  Sender: FDA-Public Use
  Company Number: 1737369

PATIENT
  Age: 57 Year
  Sex: Female

DRUGS (8)
  1. DIPHENHYDRAMINE HCL [Suspect]
     Dates: start: 20120824
  2. TRAMADOL [Suspect]
     Dates: start: 20120824
  3. BUTALBITAL [Suspect]
     Dates: start: 20120824
  4. ZOLPIDEM [Suspect]
     Dates: start: 20120824
  5. CARISOPRODOL [Suspect]
     Dates: start: 20120824
  6. TEMAZEPAM [Suspect]
     Dates: start: 20120824
  7. HYDROCODONE [Suspect]
     Dates: start: 20120824
  8. CITALOPRAM [Suspect]
     Dates: start: 20120824

REACTIONS (2)
  - Completed suicide [None]
  - Toxicity to various agents [None]
